FAERS Safety Report 26022374 (Version 1)
Quarter: 2025Q4

REPORT INFORMATION
  Report Type: Spontaneous
  Country: EU (occurrence: EU)
  Receive Date: 20251110
  Receipt Date: 20251110
  Transmission Date: 20260118
  Serious: Yes (Other)
  Sender: PFIZER
  Company Number: EU-BAYER-2025A130660

PATIENT
  Age: 52 Year
  Sex: Male

DRUGS (4)
  1. DOCETAXEL [Suspect]
     Active Substance: DOCETAXEL
     Dosage: UNK, CYCLIC (6 CYCLES)
     Dates: end: 20250110
  2. NUBEQA [Suspect]
     Active Substance: DAROLUTAMIDE
     Dosage: 600 MG, BID
     Dates: start: 20240927
  3. ATORVASTATIN [Concomitant]
     Active Substance: ATORVASTATIN
     Dosage: UNK
  4. LEUPROLIDE ACETATE [Concomitant]
     Active Substance: LEUPROLIDE ACETATE
     Dosage: UNK

REACTIONS (7)
  - Hormone-dependent prostate cancer [Not Recovered/Not Resolved]
  - Metastases to bladder [Unknown]
  - Metastases to bone [Unknown]
  - Bladder injury [Unknown]
  - Alopecia [Unknown]
  - Lymphadenopathy [Unknown]
  - Vitamin D deficiency [Unknown]

NARRATIVE: CASE EVENT DATE: 20250901
